FAERS Safety Report 10170485 (Version 1)
Quarter: 2014Q2

REPORT INFORMATION
  Report Type: Spontaneous
  Country: DK (occurrence: GB)
  Receive Date: 20140513
  Receipt Date: 20140513
  Transmission Date: 20141212
  Serious: Yes (Hospitalization)
  Sender: FDA-Public Use
  Company Number: GB-FRI-1000067288

PATIENT
  Age: 74 Year
  Sex: Female

DRUGS (6)
  1. CITALOPRAM [Suspect]
     Indication: DEPRESSION
     Dosage: 10 MG DAILY
     Route: 048
     Dates: end: 20140412
  2. ADCAL D3 [Concomitant]
  3. LANSOPRAZOLE [Concomitant]
  4. MIRTAZAPINE [Concomitant]
  5. RISPERIDONE [Concomitant]
  6. SENNA [Concomitant]

REACTIONS (2)
  - Hypokalaemia [Recovered/Resolved]
  - Electrocardiogram QRS complex prolonged [Recovered/Resolved]
